FAERS Safety Report 9201764 (Version 1)
Quarter: 2013Q1

REPORT INFORMATION
  Report Type: Spontaneous
  Country: GB (occurrence: None)
  Receive Date: 20130327
  Receipt Date: 20130327
  Transmission Date: 20140127
  Serious: Yes (Other)
  Sender: FDA-Public Use
  Company Number: 2013SUN00384

PATIENT
  Age: 29 Year
  Sex: Female

DRUGS (6)
  1. OLANZAPINE (OLANZAPINE) [Suspect]
     Indication: AFFECTIVE DISORDER
     Route: 048
     Dates: start: 20120904
  2. LANSOPRAZOLE (LANSOPRAZOLE) [Concomitant]
  3. MIRTAZAPINE (MIRTAZAPINE) [Concomitant]
  4. NEFOPAM (NEFOPAM) [Concomitant]
  5. PROMETHAZINE (PROMETHAZINE) [Concomitant]
  6. ZOPICLOME (ZOPICLONE) [Concomitant]

REACTIONS (1)
  - Somnambulism [None]
